FAERS Safety Report 25174394 (Version 1)
Quarter: 2025Q2

REPORT INFORMATION
  Report Type: Spontaneous
  Country: US (occurrence: US)
  Receive Date: 20250408
  Receipt Date: 20250408
  Transmission Date: 20250717
  Serious: No
  Sender: CALLIDITAS THERAPEUTICS
  Company Number: US-Calliditas-2025CAL00472

PATIENT
  Age: 62 Year
  Sex: Female

DRUGS (2)
  1. TARPEYO [Suspect]
     Active Substance: BUDESONIDE
     Indication: IgA nephropathy
     Route: 048
     Dates: start: 20240531, end: 20250227
  2. OLMESARTAN [Concomitant]
     Active Substance: OLMESARTAN

REACTIONS (9)
  - Peripheral swelling [Recovering/Resolving]
  - Blood pressure fluctuation [Not Recovered/Not Resolved]
  - Contusion [Recovering/Resolving]
  - Swelling face [Unknown]
  - Swelling [Unknown]
  - Skin induration [Unknown]
  - Headache [Not Recovered/Not Resolved]
  - Alopecia [Not Recovered/Not Resolved]
  - Tachycardia [Not Recovered/Not Resolved]

NARRATIVE: CASE EVENT DATE: 20241101
